FAERS Safety Report 6246276-X (Version None)
Quarter: 2009Q2

REPORT INFORMATION
  Report Type: 
  Country: None (occurrence: None)
  Receive Date: 20090626
  Receipt Date: 20090615
  Transmission Date: 20091009
  Serious: Yes (Other)
  Sender: FDA-Public Use
  Company Number: PHHY2009BR24221

PATIENT
  Sex: Female

DRUGS (3)
  1. EXELON [Suspect]
     Indication: DEMENTIA ALZHEIMER'S TYPE
     Dosage: UNK
     Dates: start: 19980101
  2. REMINYL [Concomitant]
     Indication: DEMENTIA ALZHEIMER'S TYPE
     Dosage: 12 MG
     Dates: start: 19950101, end: 20070601
  3. EBIXA [Concomitant]
     Indication: DEMENTIA ALZHEIMER'S TYPE
     Dosage: 10 MG
     Dates: start: 20070101

REACTIONS (9)
  - AGGRESSION [None]
  - ANOREXIA [None]
  - APHASIA [None]
  - COMMUNICATION DISORDER [None]
  - LACK OF SPONTANEOUS SPEECH [None]
  - MEMORY IMPAIRMENT [None]
  - NAUSEA [None]
  - VAGINAL INFECTION [None]
  - WEIGHT DECREASED [None]
